APPROVED DRUG PRODUCT: CEFOTAXIME AND DEXTROSE 2.4% IN PLASTIC CONTAINER
Active Ingredient: CEFOTAXIME SODIUM
Strength: EQ 2GM BASE
Dosage Form/Route: INJECTABLE;INJECTION
Application: N050792 | Product #001
Applicant: B BRAUN MEDICAL INC
Approved: Jul 29, 2004 | RLD: No | RS: No | Type: DISCN